FAERS Safety Report 23420931 (Version 1)
Quarter: 2024Q1

REPORT INFORMATION
  Report Type: Spontaneous
  Country: PT (occurrence: PT)
  Receive Date: 20240119
  Receipt Date: 20240119
  Transmission Date: 20240410
  Serious: Yes (Hospitalization, Other)
  Sender: FDA-Public Use
  Company Number: PT-Accord-202987

PATIENT
  Age: 45 Year
  Sex: Female

DRUGS (9)
  1. LEVETIRACETAM [Suspect]
     Active Substance: LEVETIRACETAM
     Indication: Epilepsy
     Dosage: SECOND PSYCHIATRIC HOSPITALIZATION
     Dates: start: 2009, end: 2015
  2. CARBAMAZEPINE [Concomitant]
     Active Substance: CARBAMAZEPINE
     Indication: Epilepsy
     Dosage: SECOND PSYCHIATRIC HOSPITALIZATION
     Dates: start: 2014, end: 2015
  3. CLOBAZAM [Concomitant]
     Active Substance: CLOBAZAM
     Indication: Epilepsy
     Dosage: SECOND PSYCHIATRIC HOSPITALIZATION
     Dates: start: 2010, end: 2015
  4. CLONAZEPAM [Concomitant]
     Active Substance: CLONAZEPAM
     Indication: Epilepsy
     Dosage: SECOND PSYCHIATRIC HOSPITALIZATION
     Dates: start: 2015
  5. ZOTEPINE [Concomitant]
     Active Substance: ZOTEPINE
     Dosage: UP TO 300 MG/DAY
  6. RISPERIDONE [Concomitant]
     Active Substance: RISPERIDONE
     Indication: Persecutory delusion
     Dosage: 37.5 MG/ML LONG-ACTING INJECTABLE FORTNIGHTLY
     Route: 030
  7. CLOBAZAM [Concomitant]
     Active Substance: CLOBAZAM
     Indication: Epilepsy
     Dosage: SECOND PSYCHIATRIC HOSPITALIZATION
     Dates: start: 2010
  8. CARBAMAZEPINE [Concomitant]
     Active Substance: CARBAMAZEPINE
     Indication: Epilepsy
     Dosage: SECOND PSYCHIATRIC HOSPITALIZATION
     Dates: start: 2011, end: 2014
  9. LEVETIRACETAM [Suspect]
     Active Substance: LEVETIRACETAM
     Indication: Epilepsy
     Dosage: SECOND PSYCHIATRIC HOSPITALIZATION
     Dates: start: 2007, end: 2009

REACTIONS (2)
  - Substance-induced psychotic disorder [Recovered/Resolved]
  - Schizophrenia [Recovered/Resolved]

NARRATIVE: CASE EVENT DATE: 20120101
